FAERS Safety Report 6554555-1 (Version None)
Quarter: 2010Q1

REPORT INFORMATION
  Report Type: 
  Country: None (occurrence: None)
  Receive Date: 20100127
  Receipt Date: 20100121
  Transmission Date: 20100710
  Serious: Yes (Death, Disabling)
  Sender: FDA-Public Use
  Company Number: PHEH2009US15847

PATIENT
  Sex: Female

DRUGS (2)
  1. GLEEVEC [Suspect]
     Indication: CHRONIC MYELOID LEUKAEMIA
     Dosage: 200 MG, UNK
     Dates: start: 20090401
  2. GLEEVEC [Suspect]
     Dosage: 300 MG, QD
     Route: 048
     Dates: start: 20090717

REACTIONS (3)
  - CLOSTRIDIUM DIFFICILE COLITIS [None]
  - DYSSTASIA [None]
  - METABOLIC ACIDOSIS [None]
